FAERS Safety Report 7308743-7 (Version None)
Quarter: 2011Q1

REPORT INFORMATION
  Report Type: 
  Country: None (occurrence: None)
  Receive Date: 20110223
  Receipt Date: 20110214
  Transmission Date: 20110831
  Serious: Yes (Other)
  Sender: FDA-Public Use
  Company Number: PHHY2011GR12247

PATIENT
  Age: 68 Year
  Sex: Female

DRUGS (7)
  1. ARAVA [Concomitant]
     Dosage: 20MG 1X1
  2. PREZOLON [Concomitant]
     Dosage: 5MG 1X1,
  3. ANTIHYPERTENSIVE DRUGS [Concomitant]
  4. VITAMIN D [Concomitant]
  5. ACLASTA [Suspect]
     Indication: RHEUMATOID ARTHRITIS
     Dosage: 5 ML, YEARLY
     Dates: start: 20101001
  6. CALCIUM [Concomitant]
  7. ACLASTA [Suspect]
     Indication: OSTEOPOROSIS
     Dosage: 5 ML, YEARLY
     Dates: start: 20091001

REACTIONS (1)
  - OSTEONECROSIS OF JAW [None]
